FAERS Safety Report 17350111 (Version 1)
Quarter: 2020Q1

REPORT INFORMATION
  Report Type: Other
  Country: None (occurrence: CN)
  Receive Date: 20200130
  Receipt Date: 20200130
  Transmission Date: 20200409
  Serious: Yes (Other)
  Sender: FDA-Public Use
  Company Number: CN-JIANGSU HENGRUI MEDICINE CO., LTD.-2079589

PATIENT
  Age: 49 Year
  Sex: Female
  Weight: 60 kg

DRUGS (5)
  1. SUFENTANIL CITRATE INJECTION [Suspect]
     Active Substance: SUFENTANIL CITRATE
     Route: 042
     Dates: start: 20200106, end: 20200107
  2. DEXMEDETOMIDINE HYDROCHLORIDE INJECTION, 200 MCG/2 ML (100 MCG/ML) SIN [Suspect]
     Active Substance: DEXMEDETOMIDINE HYDROCHLORIDE
     Indication: ANKLE FRACTURE
     Route: 042
     Dates: start: 20200106, end: 20200107
  3. GLYCEROL FRUCTOSE AND SODIUM CHLORIDE INJECTION [Suspect]
     Active Substance: FRUCTOSE\GLYCERIN\SODIUM CHLORIDE
     Route: 042
     Dates: start: 20200106, end: 20200107
  4. COMPOUND SODIUM CHLORIDE INJECTION [Concomitant]
     Active Substance: SODIUM CHLORIDE
     Route: 042
     Dates: start: 20200106, end: 20200107
  5. DEZOCINE INJECTION [Suspect]
     Active Substance: DEZOCINE
     Route: 042
     Dates: start: 20200106, end: 20200107

REACTIONS (5)
  - Blood pressure decreased [Recovered/Resolved]
  - Dizziness [Recovered/Resolved]
  - Heart rate decreased [Recovered/Resolved]
  - Chest discomfort [Recovered/Resolved]
  - Palpitations [Recovered/Resolved]

NARRATIVE: CASE EVENT DATE: 20200106
